FAERS Safety Report 6100415-X (Version None)
Quarter: 2009Q1

REPORT INFORMATION
  Report Type: 
  Country: None (occurrence: None)
  Receive Date: 20090303
  Receipt Date: 20090128
  Transmission Date: 20090719
  Serious: No
  Sender: FDA-Public Use
  Company Number: US-BAYER-200839733NA

PATIENT
  Age: 57 Year
  Sex: Female

DRUGS (2)
  1. ULTRAVIST 300 [Suspect]
     Indication: NECK MASS
     Dosage: TOTAL DAILY DOSE: 100 ML  UNIT DOSE: 100 ML
     Route: 042
     Dates: start: 20081126, end: 20081126
  2. GASTROGRAFIN [Concomitant]
     Indication: COMPUTERISED TOMOGRAM
     Route: 048
     Dates: start: 20081126, end: 20081126

REACTIONS (3)
  - EYE PRURITUS [None]
  - OCULAR HYPERAEMIA [None]
  - PARAESTHESIA ORAL [None]
